FAERS Safety Report 7893201-1 (Version None)
Quarter: 2011Q4

REPORT INFORMATION
  Report Type: 
  Country: None (occurrence: None)
  Receive Date: 20111104
  Receipt Date: 20111024
  Transmission Date: 20120403
  Serious: Yes (Other)
  Sender: FDA-Public Use
  Company Number: JP-CELGENEUS-087-50794-11110036

PATIENT
  Sex: Female
  Weight: 53 kg

DRUGS (7)
  1. VIDAZA [Suspect]
     Dosage: 100 MILLIGRAM
     Route: 041
     Dates: start: 20110425, end: 20110429
  2. LANSOPRAZOLE [Concomitant]
     Route: 065
     Dates: start: 20110328
  3. VIDAZA [Suspect]
     Indication: MYELODYSPLASTIC SYNDROME
     Dosage: 100 MILLIGRAM
     Route: 041
     Dates: start: 20110328, end: 20110401
  4. VIDAZA [Suspect]
     Dosage: 100 MILLIGRAM
     Route: 041
     Dates: start: 20110502, end: 20110503
  5. DIFLUCAN [Concomitant]
     Route: 065
     Dates: start: 20110328
  6. VIDAZA [Suspect]
     Dosage: 100 MILLIGRAM
     Route: 041
     Dates: start: 20110404, end: 20110405
  7. BAKTAR [Concomitant]
     Route: 065
     Dates: start: 20110328

REACTIONS (2)
  - PAIN IN EXTREMITY [None]
  - SKIN HAEMORRHAGE [None]
